FAERS Safety Report 6148475-4 (Version None)
Quarter: 2009Q2

REPORT INFORMATION
  Report Type: 
  Country: None (occurrence: None)
  Receive Date: 20090408
  Receipt Date: 20090327
  Transmission Date: 20091009
  Serious: Yes (Other)
  Sender: FDA-Public Use
  Company Number: PHHY2008GB30562

PATIENT
  Sex: Male

DRUGS (6)
  1. CLOZARIL [Suspect]
     Indication: SCHIZOPHRENIA
     Dosage: 250 MG, UNK
     Route: 048
     Dates: start: 20060316, end: 20081203
  2. INTERFERON [Suspect]
     Indication: HEPATITIS C
     Route: 058
  3. SEROQUEL [Concomitant]
  4. QUETIAPINE [Concomitant]
  5. HALOPERIDOL [Concomitant]
     Dosage: 5 MG TDS
  6. DIAZEPAM [Concomitant]

REACTIONS (5)
  - HEPATITIS C [None]
  - MENTAL IMPAIRMENT [None]
  - NEUTROPENIA [None]
  - NEUTROPHIL COUNT DECREASED [None]
  - WHITE BLOOD CELL COUNT DECREASED [None]
